FAERS Safety Report 9473327 (Version 1)
Quarter: 2013Q3

REPORT INFORMATION
  Report Type: Spontaneous
  Country: US (occurrence: US)
  Receive Date: 20130823
  Receipt Date: 20130823
  Transmission Date: 20140515
  Serious: Yes (Other)
  Sender: FDA-Public Use
  Company Number: US-BRISTOL-MYERS SQUIBB COMPANY-18895151

PATIENT
  Age: 67 Year
  Sex: Female

DRUGS (1)
  1. SPRYCEL [Suspect]

REACTIONS (2)
  - Pericardial effusion [Unknown]
  - Fluid retention [Unknown]
